FAERS Safety Report 7105558-X (Version None)
Quarter: 2010Q4

REPORT INFORMATION
  Report Type: 
  Country: None (occurrence: None)
  Receive Date: 20101110
  Receipt Date: 20101101
  Transmission Date: 20110411
  Serious: Yes (Hospitalization)
  Sender: FDA-Public Use
  Company Number: 2010US004249

PATIENT
  Age: 28 Year
  Sex: Male

DRUGS (12)
  1. AMEVIVE [Suspect]
     Indication: RENAL TRANSPLANT
     Dosage: 15 MG, WEEKLY, SUBCUTANEOUS
     Route: 058
     Dates: start: 20100920, end: 20101004
  2. PROGRAFF (TACROLIMUS) CAPSULE [Concomitant]
  3. NORCO [Concomitant]
  4. ASPIRIN [Concomitant]
  5. SENNA (SENNOSIDE A+B) [Concomitant]
  6. BACTRIM [Concomitant]
  7. VALTREX [Concomitant]
  8. NORVASC [Concomitant]
  9. MYCELEX [Concomitant]
  10. PEPCID [Concomitant]
  11. METOPROLOL SUCCINATE [Concomitant]
  12. MYCOPHENOLIC ACID [Concomitant]

REACTIONS (1)
  - LYMPHOCELE [None]
